FAERS Safety Report 5614356-5 (Version None)
Quarter: 2008Q1

REPORT INFORMATION
  Report Type: 
  Country: None (occurrence: None)
  Receive Date: 20080205
  Receipt Date: 20080126
  Transmission Date: 20080703
  Serious: Yes (Life-Threatening, Other)
  Sender: FDA-Public Use
  Company Number: CN-PFIZER INC-2008008523

PATIENT
  Age: 38 Year
  Sex: Female

DRUGS (5)
  1. SOLU-MEDROL [Suspect]
     Indication: ASTHMA
     Route: 042
     Dates: start: 20080120, end: 20080120
  2. KETOTIFEN FUMARATE [Concomitant]
     Route: 048
  3. MONTELUKAST SODIUM [Concomitant]
     Route: 048
  4. SALBUTAMOL SULFATE [Concomitant]
     Route: 055
  5. AMINOPHYLLINE [Concomitant]

REACTIONS (2)
  - CHEST DISCOMFORT [None]
  - SHOCK [None]
